FAERS Safety Report 5062697-5 (Version None)
Quarter: 2006Q3

REPORT INFORMATION
  Report Type: 
  Country: None (occurrence: None)
  Receive Date: 20060703
  Receipt Date: 20051025
  Transmission Date: 20061208
  Serious: No
  Sender: FDA-Public Use
  Company Number: 2005S1010543

PATIENT
  Age: 31 Year
  Sex: Male

DRUGS (4)
  1. CLOZAPINE [Suspect]
     Indication: PSYCHOTIC DISORDER
     Dosage: 150MG; HS; PO
     Route: 048
     Dates: start: 20051001, end: 20051117
  2. CLOZAPINE [Suspect]
     Indication: SCHIZOPHRENIA
     Dosage: 150MG; HS; PO
     Route: 048
     Dates: start: 20051001, end: 20051117
  3. VALPROATE SODIUM [Concomitant]
  4. RISPERIDONE [Concomitant]

REACTIONS (1)
  - GRANULOCYTOPENIA [None]
